FAERS Safety Report 11020932 (Version 1)
Quarter: 2015Q2

REPORT INFORMATION
  Report Type: Spontaneous
  Country: ES (occurrence: ES)
  Receive Date: 20150413
  Receipt Date: 20150413
  Transmission Date: 20150821
  Serious: Yes (Other)
  Sender: FDA-Public Use
  Company Number: ES-JNJFOC-20150405775

PATIENT
  Age: 81 Year
  Sex: Female

DRUGS (1)
  1. ZALDIAR [Suspect]
     Active Substance: ACETAMINOPHEN\TRAMADOL HYDROCHLORIDE
     Indication: PRODUCT USED FOR UNKNOWN INDICATION
     Route: 048
     Dates: start: 20150318, end: 20150319

REACTIONS (7)
  - Tremor [Recovered/Resolved]
  - Dizziness [Recovered/Resolved]
  - Anxiety [Recovered/Resolved]
  - Chills [Recovered/Resolved]
  - Tongue disorder [Recovered/Resolved]
  - Skin discolouration [Recovered/Resolved]
  - Sweat discolouration [Recovered/Resolved]

NARRATIVE: CASE EVENT DATE: 20150318
